FAERS Safety Report 23983041 (Version 2)
Quarter: 2024Q3

REPORT INFORMATION
  Report Type: Spontaneous
  Country: US (occurrence: US)
  Receive Date: 20240617
  Receipt Date: 20240809
  Transmission Date: 20241017
  Serious: Yes (Other)
  Sender: CALLIDITAS THERAPEUTICS
  Company Number: US-Calliditas-2024CAL01003

PATIENT
  Age: 24 Year
  Sex: Male

DRUGS (1)
  1. TARPEYO [Suspect]
     Active Substance: BUDESONIDE
     Indication: IgA nephropathy
     Route: 048
     Dates: start: 20240430

REACTIONS (7)
  - Product dose omission issue [Unknown]
  - Hypotension [Unknown]
  - Renal impairment [Unknown]
  - Weight decreased [Unknown]
  - Muscle atrophy [Unknown]
  - Nausea [Unknown]
  - Dyspepsia [Unknown]
